FAERS Safety Report 6649408-4 (Version None)
Quarter: 2010Q1

REPORT INFORMATION
  Report Type: 
  Country: None (occurrence: None)
  Receive Date: 20100324
  Receipt Date: 20100310
  Transmission Date: 20100710
  Serious: Yes (Life-Threatening, Other)
  Sender: FDA-Public Use
  Company Number: US-GENENTECH-299318

PATIENT
  Age: 65 Year
  Sex: Female

DRUGS (9)
  1. TENECTEPLASE [Suspect]
     Indication: MYOCARDIAL INFARCTION
  2. PRAMIPEXOLE DIHYDROCHLORIDE [Suspect]
     Indication: PARKINSON'S DISEASE
  3. SINEMET [Suspect]
     Indication: PARKINSON'S DISEASE
  4. TRIHEXYPHENIDYL HCL [Suspect]
     Indication: PARKINSON'S DISEASE
  5. RASAGILINE [Suspect]
     Indication: PARKINSON'S DISEASE
  6. LISINOPRIL [Concomitant]
     Indication: HYPERTENSION
  7. ENOXAPARIN SODIUM [Concomitant]
     Indication: MYOCARDIAL INFARCTION
  8. ASPIRIN [Concomitant]
     Indication: MYOCARDIAL INFARCTION
  9. METOPROLOL [Concomitant]
     Indication: MYOCARDIAL INFARCTION

REACTIONS (1)
  - CORONARY ARTERY DISSECTION [None]
